FAERS Safety Report 17822769 (Version 1)
Quarter: 2020Q2

REPORT INFORMATION
  Report Type: Spontaneous
  Country: US (occurrence: US)
  Receive Date: 20200526
  Receipt Date: 20200526
  Transmission Date: 20200714
  Serious: Yes (Other)
  Sender: FDA-Public Use
  Company Number: US-ROCHE-2599910

PATIENT
  Age: 39 Year
  Sex: Female
  Weight: 106.69 kg

DRUGS (5)
  1. OCREVUS [Suspect]
     Active Substance: OCRELIZUMAB
     Indication: MULTIPLE SCLEROSIS
     Route: 065
     Dates: start: 20191212
  2. OCREVUS [Suspect]
     Active Substance: OCRELIZUMAB
     Dosage: FIRST DOSE OF OCREVUS
     Route: 042
     Dates: start: 201712
  3. DOXYCYCLINE. [Concomitant]
     Active Substance: DOXYCYCLINE
  4. TIZANIDINE. [Concomitant]
     Active Substance: TIZANIDINE
     Indication: BLOOD PRESSURE MEASUREMENT
     Route: 065
  5. AMLODIPINE [Concomitant]
     Active Substance: AMLODIPINE BESYLATE

REACTIONS (3)
  - Ageusia [Not Recovered/Not Resolved]
  - Anosmia [Not Recovered/Not Resolved]
  - Suspected COVID-19 [Recovered/Resolved]

NARRATIVE: CASE EVENT DATE: 20200315
